FAERS Safety Report 7258694-1 (Version None)
Quarter: 2011Q1

REPORT INFORMATION
  Report Type: 
  Country: None (occurrence: None)
  Receive Date: 20110129
  Receipt Date: 20100601
  Transmission Date: 20110831
  Serious: No
  Sender: FDA-Public Use
  Company Number: US-ABBOTT-10P-163-0648105-00

PATIENT
  Sex: Male

DRUGS (10)
  1. CENTRUM SILVER [Concomitant]
     Indication: ROUTINE HEALTH MAINTENANCE
  2. OSTEO BI-FLEX [Concomitant]
     Indication: ROUTINE HEALTH MAINTENANCE
  3. HUMIRA [Suspect]
     Indication: CROHN'S DISEASE
     Dates: start: 20090601
  4. ASPIRIN [Concomitant]
     Indication: CARDIAC DISORDER
  5. VIT B 12 [Concomitant]
     Indication: ROUTINE HEALTH MAINTENANCE
  6. FISH OIL [Concomitant]
     Indication: ROUTINE HEALTH MAINTENANCE
  7. ZINC [Concomitant]
     Indication: ROUTINE HEALTH MAINTENANCE
  8. BIOTIN [Concomitant]
     Indication: ALOPECIA
  9. CALTRATE [Concomitant]
     Indication: ROUTINE HEALTH MAINTENANCE
  10. OSCAL D [Concomitant]
     Indication: ROUTINE HEALTH MAINTENANCE

REACTIONS (5)
  - WOUND DRAINAGE [None]
  - MELANOCYTIC NAEVUS [None]
  - IMPAIRED HEALING [None]
  - LACERATION [None]
  - ERYTHEMA [None]
